FAERS Safety Report 5298708-1 (Version None)
Quarter: 2007Q1

REPORT INFORMATION
  Report Type: 
  Country: None (occurrence: None)
  Receive Date: 20070201
  Receipt Date: 20061029
  Transmission Date: 20070707
  Serious: No
  Sender: FDA-Public Use
  Company Number: 2006PV024087

PATIENT
  Age: 73 Year
  Sex: Female
  Weight: 111.5849 kg

DRUGS (4)
  1. BYETTA [Suspect]
     Indication: DIABETES MELLITUS NON-INSULIN-DEPENDENT
     Dosage: SEE IMAGE
     Route: 058
  2. BYETTA [Suspect]
     Indication: DIABETES MELLITUS NON-INSULIN-DEPENDENT
     Dosage: SEE IMAGE
     Route: 058
     Dates: start: 20061025
  3. METFORMIN HCL [Concomitant]
  4. GLIMEPIRIDE [Concomitant]

REACTIONS (5)
  - BLOOD GLUCOSE INCREASED [None]
  - CONDITION AGGRAVATED [None]
  - DRUG INEFFECTIVE FOR UNAPPROVED INDICATION [None]
  - NEUROPATHY [None]
  - WEIGHT DECREASED [None]
